FAERS Safety Report 4344868-6 (Version None)
Quarter: 2004Q2

REPORT INFORMATION
  Report Type: 
  Country: None (occurrence: None)
  Receive Date: 20040423
  Receipt Date: 20031020
  Transmission Date: 20050107
  Serious: No
  Sender: FDA-Public Use
  Company Number: US-GLAXOSMITHKLINE-A0431076A

PATIENT
  Age: 83 Year
  Sex: Male
  Weight: 67.4 kg

DRUGS (4)
  1. ZOFRAN [Suspect]
     Indication: NAUSEA
     Dosage: 8MG TWICE PER DAY
     Route: 048
     Dates: start: 20031001
  2. ZOFRAN [Suspect]
     Indication: PROSTATE CANCER
     Dosage: 30MG PER DAY
     Route: 042
     Dates: start: 20031001
  3. DILAUDID [Concomitant]
  4. DURAGESIC [Concomitant]

REACTIONS (1)
  - DRUG INEFFECTIVE [None]
